FAERS Safety Report 8103106-9 (Version None)
Quarter: 2011Q4

REPORT INFORMATION
  Report Type: 
  Country: None (occurrence: None)
  Receive Date: 20111222
  Receipt Date: 20111121
  Transmission Date: 20120403
  Serious: Yes (Hospitalization)
  Sender: FDA-Public Use
  Company Number: UTC-010430

PATIENT
  Age: 61 Year
  Sex: Female
  Weight: 88.6 kg

DRUGS (3)
  1. TRACLEER (BOSENTAN) (UNKNOWN) [Concomitant]
  2. TYVASO [Suspect]
     Indication: COR PULMONALE CHRONIC
     Dosage: 216 MCG (54 MCG, 4 IN 1 D), INHALATION
     Route: 055
     Dates: start: 20110811
  3. DIURETICS (DIURETICS) (UNKNOWN) [Concomitant]

REACTIONS (3)
  - MEDICATION ERROR [None]
  - BLOOD POTASSIUM DECREASED [None]
  - CONFUSIONAL STATE [None]
